FAERS Safety Report 4585945-4 (Version None)
Quarter: 2005Q1

REPORT INFORMATION
  Report Type: 
  Country: None (occurrence: None)
  Receive Date: 20050214
  Receipt Date: 20050202
  Transmission Date: 20050727
  Serious: Yes (Life-Threatening, Hospitalization, Other)
  Sender: FDA-Public Use
  Company Number: DEWYE397103FEB05

PATIENT
  Age: 84 Year
  Sex: Female

DRUGS (1)
  1. TREVILOR RETARD (VENLAFAXINE HYDROCHLORIDE, CAPSULE, EXTENDED RELEASE) [Suspect]
     Indication: DEPRESSIVE DELUSION
     Dosage: 150 MG 1X PER 1 DAY
     Route: 048
     Dates: start: 20040603, end: 20040702

REACTIONS (5)
  - AGRANULOCYTOSIS [None]
  - CLOSTRIDIUM COLITIS [None]
  - DRUG TOXICITY [None]
  - LEUKOPENIA [None]
  - PNEUMONIA [None]
